FAERS Safety Report 5225719-4 (Version None)
Quarter: 2007Q1

REPORT INFORMATION
  Report Type: 
  Country: None (occurrence: None)
  Receive Date: 20070131
  Receipt Date: 20070122
  Transmission Date: 20070707
  Serious: Yes (Disabling, Other)
  Sender: FDA-Public Use
  Company Number: BE-ABBOTT-06P-013-0351242-00

PATIENT
  Sex: Male
  Weight: 71 kg

DRUGS (3)
  1. HUMIRA [Suspect]
     Indication: ANKYLOSING SPONDYLITIS
     Route: 058
     Dates: start: 20061028, end: 20061110
  2. INFLIXIMAB [Suspect]
     Indication: DRUG USE FOR UNKNOWN INDICATION
     Dates: start: 20050401, end: 20060901
  3. VALORON N [Concomitant]
     Indication: MUSCULOSKELETAL PAIN
     Dosage: 10-20 DROPS
     Dates: start: 20050101

REACTIONS (6)
  - BLINDNESS UNILATERAL [None]
  - HEADACHE [None]
  - INSOMNIA [None]
  - NIGHTMARE [None]
  - OPTIC NERVE INJURY [None]
  - OPTIC NEURITIS [None]
